FAERS Safety Report 23769874 (Version 1)
Quarter: 2024Q2

REPORT INFORMATION
  Report Type: Spontaneous
  Country: PL (occurrence: PL)
  Receive Date: 20240422
  Receipt Date: 20240422
  Transmission Date: 20240716
  Serious: Yes (Death, Other)
  Sender: FDA-Public Use
  Company Number: PL-GE HEALTHCARE-2024CSU003931

PATIENT
  Age: 67 Year
  Sex: Male
  Weight: 72 kg

DRUGS (1)
  1. OMNIPAQUE [Suspect]
     Active Substance: IOHEXOL
     Indication: Computerised tomogram thorax
     Dosage: 50 ML, TOTAL
     Route: 042
     Dates: start: 20240415, end: 20240415

REACTIONS (5)
  - Malaise [Fatal]
  - Contrast media allergy [Fatal]
  - Cardiac arrest [Fatal]
  - Dyspnoea [Fatal]
  - Hypotension [Unknown]

NARRATIVE: CASE EVENT DATE: 20240415
